FAERS Safety Report 6121461-6 (Version None)
Quarter: 2009Q1

REPORT INFORMATION
  Report Type: 
  Country: None (occurrence: None)
  Receive Date: 20090313
  Receipt Date: 20090313
  Transmission Date: 20090719
  Serious: No
  Sender: FDA-Public Use
  Company Number: None

PATIENT
  Age: 39 Year
  Sex: Female
  Weight: 53.5244 kg

DRUGS (1)
  1. AMPHETAMINES [Suspect]
     Indication: NARCOLEPSY
     Dosage: 1 ONCE A DAY PO
     Route: 048
     Dates: start: 20090224, end: 20090227

REACTIONS (4)
  - DRUG INEFFECTIVE [None]
  - FEELING ABNORMAL [None]
  - HEADACHE [None]
  - THERAPEUTIC RESPONSE UNEXPECTED WITH DRUG SUBSTITUTION [None]
